FAERS Safety Report 17005558 (Version 1)
Quarter: 2019Q4

REPORT INFORMATION
  Report Type: Spontaneous
  Country: GB (occurrence: GB)
  Receive Date: 20191107
  Receipt Date: 20191107
  Transmission Date: 20200122
  Serious: Yes (Hospitalization)
  Sender: FDA-Public Use
  Company Number: GB-MYLANLABS-2019M1105765

PATIENT
  Age: 43 Year
  Sex: Male
  Weight: 93 kg

DRUGS (16)
  1. METOCLOPRAMIDE. [Concomitant]
     Active Substance: METOCLOPRAMIDE
     Dosage: UNK
  2. DOCUSATE SODIUM. [Concomitant]
     Active Substance: DOCUSATE SODIUM
     Dosage: UNK
  3. MORPHINE SULFATE. [Concomitant]
     Active Substance: MORPHINE SULFATE
     Dosage: UNK
  4. FLUCONAZOLE. [Concomitant]
     Active Substance: FLUCONAZOLE
     Dosage: UNK
  5. OMEPRAZOLE. [Concomitant]
     Active Substance: OMEPRAZOLE
     Dosage: UNK
  6. FOLIC ACID. [Concomitant]
     Active Substance: FOLIC ACID
     Dosage: UNK
  7. LEVOMEPROMAZINE [Concomitant]
     Active Substance: LEVOMEPROMAZINE
     Dosage: UNK
  8. MEROPENEM. [Concomitant]
     Active Substance: MEROPENEM
     Dosage: UNK
  9. ALLOPURINOL. [Concomitant]
     Active Substance: ALLOPURINOL
     Dosage: UNK
  10. LINEZOLID. [Suspect]
     Active Substance: LINEZOLID
     Indication: ENTEROCOCCAL INFECTION
     Dosage: 600 MILLIGRAM
     Route: 042
     Dates: start: 20181111, end: 20181112
  11. DAPTOMYCIN. [Concomitant]
     Active Substance: DAPTOMYCIN
     Dosage: UNK
  12. COTRIMOXAZOLE [Concomitant]
     Active Substance: SULFAMETHOXAZOLE\TRIMETHOPRIM
     Dosage: UNK
  13. PHYTOMENADIONE [Concomitant]
     Active Substance: PHYTONADIONE
     Dosage: UNK
  14. ACICLOVIR [Concomitant]
     Active Substance: ACYCLOVIR
     Dosage: UNK
  15. ONDANSETRON HYDROCHLORIDE. [Concomitant]
     Active Substance: ONDANSETRON HYDROCHLORIDE
     Dosage: UNK
  16. CIPROFLOXACIN HYDROCHLORIDE. [Concomitant]
     Active Substance: CIPROFLOXACIN HYDROCHLORIDE
     Dosage: UNK

REACTIONS (3)
  - Hallucination [Unknown]
  - Neurological decompensation [Not Recovered/Not Resolved]
  - Confusional state [Unknown]

NARRATIVE: CASE EVENT DATE: 20181111
